FAERS Safety Report 4295295-1 (Version None)
Quarter: 2004Q1

REPORT INFORMATION
  Report Type: 
  Country: None (occurrence: None)
  Receive Date: 20040216
  Receipt Date: 20030519
  Transmission Date: 20041129
  Serious: No
  Sender: FDA-Public Use
  Company Number: US-GLAXOSMITHKLINE-A0409047A

PATIENT
  Age: 30 Year
  Sex: Female

DRUGS (4)
  1. LAMICTAL [Suspect]
     Indication: BIPOLAR II DISORDER
     Dosage: 200MG TWICE PER DAY
     Route: 048
     Dates: start: 20011201
  2. WELLBUTRIN [Concomitant]
     Dosage: 100MG THREE TIMES PER DAY
     Route: 048
  3. TOPAMAX [Concomitant]
     Dosage: 100MG TWICE PER DAY
  4. SEROQUEL [Concomitant]
     Dosage: 100MG ALTERNATE DAYS

REACTIONS (1)
  - PRURITUS [None]
